FAERS Safety Report 19459287 (Version 3)
Quarter: 2021Q3

REPORT INFORMATION
  Report Type: Report from Study
  Country: CA (occurrence: CA)
  Receive Date: 20210624
  Receipt Date: 20210825
  Transmission Date: 20211014
  Serious: Yes (Hospitalization, Other)
  Sender: FDA-Public Use
  Company Number: PHHY2013CA018499

PATIENT
  Age: 44 Year
  Sex: Female

DRUGS (3)
  1. GILENYA [Suspect]
     Active Substance: FINGOLIMOD HYDROCHLORIDE
     Indication: RELAPSING-REMITTING MULTIPLE SCLEROSIS
     Dosage: 0.5 MG, QD
     Route: 048
     Dates: start: 20110628
  2. GILENYA [Suspect]
     Active Substance: FINGOLIMOD HYDROCHLORIDE
     Dosage: 0.5 MG, QD
     Route: 048
     Dates: start: 20130311
  3. GILENYA [Suspect]
     Active Substance: FINGOLIMOD HYDROCHLORIDE
     Dosage: UNK
     Route: 048

REACTIONS (8)
  - Central nervous system lesion [Unknown]
  - Ulcer [Unknown]
  - Post procedural infection [Unknown]
  - Dyschromatopsia [Unknown]
  - Multiple sclerosis relapse [Unknown]
  - White blood cell count decreased [Unknown]
  - Maculopathy [Unknown]
  - Eye disorder [Unknown]

NARRATIVE: CASE EVENT DATE: 201209
